FAERS Safety Report 13176840 (Version 3)
Quarter: 2017Q1

REPORT INFORMATION
  Report Type: Report from Study
  Country: None (occurrence: ES)
  Receive Date: 20170201
  Receipt Date: 20170216
  Transmission Date: 20170428
  Serious: Yes (Death, Life-Threatening, Hospitalization, Other)
  Sender: FDA-Public Use
  Company Number: ES-ABBVIE-17P-144-1857262-00

PATIENT
  Age: 82 Year
  Sex: Male

DRUGS (5)
  1. AMERIDE [Concomitant]
     Indication: PRODUCT USED FOR UNKNOWN INDICATION
     Dosage: 5/50 MG
     Route: 048
  2. OMEPRAZOLE. [Concomitant]
     Active Substance: OMEPRAZOLE
     Indication: PRODUCT USED FOR UNKNOWN INDICATION
     Route: 048
  3. PARACETAMOL [Concomitant]
     Active Substance: ACETAMINOPHEN
     Indication: PRODUCT USED FOR UNKNOWN INDICATION
  4. DUODOPA [Suspect]
     Active Substance: CARBIDOPA\LEVODOPA
     Indication: PARKINSON^S DISEASE
     Dosage: MORNING DOSE: 15 ML; CONTINOUS DOSE: 2.8 ML/H; EXTRA DOSE: 2 ML
     Route: 050
     Dates: start: 20170110, end: 20170124
  5. DUODOPA [Suspect]
     Active Substance: CARBIDOPA\LEVODOPA
     Dosage: MORNING DOSE: 15 ML; CONTINUOUS DOSE: 3.6 ML/H; EXTRA DOSE: 2 ML
     Route: 050
     Dates: start: 20170124

REACTIONS (12)
  - Abdominal pain [Recovering/Resolving]
  - Sepsis [Recovering/Resolving]
  - Anuria [Recovering/Resolving]
  - Peritonitis [Fatal]
  - Blood lactic acid increased [Recovering/Resolving]
  - Complication associated with device [Recovering/Resolving]
  - Pneumoperitoneum [Unknown]
  - Acute kidney injury [Recovering/Resolving]
  - Hypotension [Recovering/Resolving]
  - Gastric perforation [Recovering/Resolving]
  - Small intestinal obstruction [Unknown]
  - Pneumonia [Recovered/Resolved]

NARRATIVE: CASE EVENT DATE: 2017
